FAERS Safety Report 11387394 (Version 2)
Quarter: 2015Q3

REPORT INFORMATION
  Report Type: Report from Study
  Country: BR (occurrence: BR)
  Receive Date: 20150817
  Receipt Date: 20150828
  Transmission Date: 20151125
  Serious: Yes (Hospitalization)
  Sender: FDA-Public Use
  Company Number: BR-BIOGENIDEC-2015BI112545

PATIENT
  Age: 60 Year
  Sex: Male

DRUGS (10)
  1. TYSABRI [Suspect]
     Active Substance: NATALIZUMAB
     Indication: MULTIPLE SCLEROSIS
     Route: 042
     Dates: start: 20140710
  2. SINVASTATINE [Concomitant]
  3. MONOCORDIL [Concomitant]
     Active Substance: ISOSORBIDE MONONITRATE
     Indication: CHEST PAIN
  4. OMEPRAZOLE. [Concomitant]
     Active Substance: OMEPRAZOLE
     Indication: GASTRIC DISORDER
  5. CLONAZEPAN [Concomitant]
     Active Substance: CLONAZEPAM
     Indication: INSOMNIA
  6. CARBAMAZEPINE. [Concomitant]
     Active Substance: CARBAMAZEPINE
     Indication: INSOMNIA
  7. ATENOLOL. [Concomitant]
     Active Substance: ATENOLOL
  8. HIDROCLOROTIAZIDE [Concomitant]
     Active Substance: HYDROCHLOROTHIAZIDE
     Indication: PROPHYLAXIS
  9. CAPTOPRIL. [Concomitant]
     Active Substance: CAPTOPRIL
  10. ACETYLSALICYLIC ACID [Concomitant]
     Active Substance: ASPIRIN

REACTIONS (9)
  - Insomnia [Not Recovered/Not Resolved]
  - Asthenia [Not Recovered/Not Resolved]
  - Amnesia [Not Recovered/Not Resolved]
  - Hypoaesthesia [Not Recovered/Not Resolved]
  - Hypertension [Not Recovered/Not Resolved]
  - Gastrointestinal examination [Unknown]
  - Cataract [Recovered/Resolved]
  - Burning sensation [Unknown]
  - Pruritus [Unknown]

NARRATIVE: CASE EVENT DATE: 201409
